FAERS Safety Report 7982766-7 (Version None)
Quarter: 2011Q4

REPORT INFORMATION
  Report Type: 
  Country: None (occurrence: None)
  Receive Date: 20111215
  Receipt Date: 20111212
  Transmission Date: 20120403
  Serious: Yes (Death)
  Sender: FDA-Public Use
  Company Number: FR-PFIZER INC-2011299385

PATIENT

DRUGS (1)
  1. DOSTINEX [Suspect]
     Indication: PITUITARY TUMOUR BENIGN
     Dosage: 1 DF, WEEKLY
     Route: 064
     Dates: start: 20101201, end: 20110901

REACTIONS (2)
  - BRAIN MALFORMATION [None]
  - MATERNAL EXPOSURE TIMING UNSPECIFIED [None]
